FAERS Safety Report 6092771-6 (Version None)
Quarter: 2009Q1

REPORT INFORMATION
  Report Type: 
  Country: None (occurrence: None)
  Receive Date: 20090225
  Receipt Date: 20090216
  Transmission Date: 20090719
  Serious: Yes (Other)
  Sender: FDA-Public Use
  Company Number: BR-ABBOTT-09P-020-0557897-00

PATIENT
  Age: 56 Year
  Sex: Male
  Weight: 63 kg

DRUGS (3)
  1. AKINETON [Suspect]
     Indication: TREMOR
     Dates: start: 20090101
  2. AKINETON [Suspect]
  3. LITHIUM CARBONATE [Concomitant]
     Indication: MANIA

REACTIONS (4)
  - DELIRIUM [None]
  - DRUG INEFFECTIVE [None]
  - FEELING OF DESPAIR [None]
  - INSOMNIA [None]
